FAERS Safety Report 9308187 (Version 4)
Quarter: 2013Q3

REPORT INFORMATION
  Report Type: Spontaneous
  Country: US (occurrence: US)
  Receive Date: 20130524
  Receipt Date: 20130722
  Transmission Date: 20140515
  Serious: Yes (Hospitalization)
  Sender: FDA-Public Use
  Company Number: US-JNJFOC-20130512618

PATIENT
  Sex: Female
  Weight: 76.2 kg

DRUGS (14)
  1. SIMPONI [Suspect]
     Indication: RHEUMATOID ARTHRITIS
     Route: 058
     Dates: start: 2011
  2. VIT D [Concomitant]
     Route: 065
  3. VERAPAMIL [Concomitant]
     Indication: HYPERTENSION
     Route: 048
  4. AZULFIDINE [Concomitant]
     Indication: ARTHRITIS
     Route: 048
  5. NEXIUM [Concomitant]
     Indication: GASTROOESOPHAGEAL REFLUX DISEASE
     Route: 048
     Dates: start: 2008
  6. PREDNISONE [Concomitant]
     Indication: ARTHRITIS
     Route: 048
  7. OXYCODONE [Concomitant]
     Indication: PAIN
     Route: 048
     Dates: start: 2011
  8. ENALAPRIL [Concomitant]
     Indication: HYPERTENSION
     Route: 048
     Dates: start: 2007
  9. NAPROXEN [Concomitant]
     Indication: ARTHRITIS
     Route: 048
  10. VIT C [Concomitant]
     Route: 065
  11. DAYPRO [Concomitant]
     Indication: ARTHRITIS
     Route: 065
  12. HYDROCHLOROTHIAZIDE [Concomitant]
     Indication: BLOOD PRESSURE
     Route: 065
  13. GABAPENTIN [Concomitant]
     Route: 065
  14. PREMARIN [Concomitant]
     Dosage: DOSE- 0.45 (UNITS UNSPECIFIED)
     Route: 065

REACTIONS (2)
  - Spinal column stenosis [Unknown]
  - Device malfunction [Unknown]
